FAERS Safety Report 13172051 (Version 1)
Quarter: 2017Q1

REPORT INFORMATION
  Report Type: Spontaneous
  Country: CZ (occurrence: CZ)
  Receive Date: 20170131
  Receipt Date: 20170131
  Transmission Date: 20170428
  Serious: Yes (Death)
  Sender: FDA-Public Use
  Company Number: CZ-ABBVIE-17P-217-1843034-00

PATIENT
  Sex: Male
  Weight: 80 kg

DRUGS (5)
  1. METHOTREXATE. [Concomitant]
     Active Substance: METHOTREXATE
     Indication: PSORIASIS
     Route: 048
     Dates: start: 20101026
  2. METHOTREXATE. [Concomitant]
     Active Substance: METHOTREXATE
     Route: 048
     Dates: start: 20110628, end: 20160618
  3. SORYASTA [Concomitant]
     Indication: DYSLIPIDAEMIA
     Dates: end: 20160618
  4. AMLORATIO [Concomitant]
     Active Substance: AMLODIPINE BESYLATE
     Indication: HYPERTENSION
  5. HUMIRA [Suspect]
     Active Substance: ADALIMUMAB
     Indication: PSORIASIS
     Route: 058
     Dates: start: 20100406, end: 20160601

REACTIONS (4)
  - Cardiac failure [Fatal]
  - Arteriosclerosis coronary artery [Fatal]
  - Pulmonary oedema [Fatal]
  - Gastritis [Fatal]
